FAERS Safety Report 23663525 (Version 1)
Quarter: 2024Q1

REPORT INFORMATION
  Report Type: Spontaneous
  Country: US (occurrence: None)
  Receive Date: 20240321
  Receipt Date: 20240321
  Transmission Date: 20240410
  Serious: Yes (Other)
  Sender: FDA-Public Use
  Company Number: None

PATIENT
  Age: 61 Year
  Sex: Female
  Weight: 61.2 kg

DRUGS (4)
  1. CYCLOBENZAPRINE [Suspect]
     Active Substance: CYCLOBENZAPRINE
     Indication: Myalgia
     Dosage: 1 TABLET AT BEDTIME ORAL
     Route: 048
     Dates: start: 20240320, end: 20240321
  2. VITAMINS [Concomitant]
     Active Substance: VITAMINS
  3. Fiber tablet [Concomitant]
  4. VITAMIN B3 [Concomitant]
     Active Substance: NIACIN

REACTIONS (3)
  - Musculoskeletal stiffness [None]
  - Headache [None]
  - Neck pain [None]

NARRATIVE: CASE EVENT DATE: 20240321
